FAERS Safety Report 25860387 (Version 1)
Quarter: 2025Q3

REPORT INFORMATION
  Report Type: Spontaneous
  Country: US (occurrence: None)
  Receive Date: 20250928
  Receipt Date: 20250928
  Transmission Date: 20251021
  Serious: No
  Sender: FDA-CTU
  Company Number: None

PATIENT
  Age: 52 Year
  Sex: Female
  Weight: 64.35 kg

DRUGS (7)
  1. SEMAGLUTIDE [Suspect]
     Active Substance: SEMAGLUTIDE
     Indication: Weight decreased
     Route: 058
     Dates: start: 20250208, end: 20250802
  2. ESTRADIOL [Concomitant]
     Active Substance: ESTRADIOL
  3. CLARITIN [Concomitant]
     Active Substance: LORATADINE
  4. VITAMIN B [Concomitant]
     Active Substance: VITAMIN B
  5. VITAMIN D [Concomitant]
     Active Substance: VITAMIN D NOS
  6. VITAMIN K [Concomitant]
     Active Substance: PHYTONADIONE
  7. VITAMINS [Concomitant]
     Active Substance: VITAMINS

REACTIONS (5)
  - Mood altered [None]
  - Depression [None]
  - Fatigue [None]
  - Antisocial behaviour [None]
  - Therapy cessation [None]

NARRATIVE: CASE EVENT DATE: 20250202
